FAERS Safety Report 14902673 (Version 1)
Quarter: 2018Q2

REPORT INFORMATION
  Report Type: Spontaneous
  Country: US (occurrence: US)
  Receive Date: 20180516
  Receipt Date: 20180516
  Transmission Date: 20180711
  Serious: Yes (Hospitalization)
  Sender: FDA-Public Use
  Company Number: US-MYLANLABS-2018M1032379

PATIENT
  Age: 55 Year
  Sex: Female

DRUGS (1)
  1. VALACICLOVIR [Suspect]
     Active Substance: VALACYCLOVIR HYDROCHLORIDE
     Indication: HERPES ZOSTER
     Dosage: 1000 MG 3 TIMES A DAY
     Route: 065

REACTIONS (3)
  - Cotard^s syndrome [Recovered/Resolved]
  - Drug prescribing error [Recovered/Resolved]
  - Toxicity to various agents [Recovered/Resolved]
